FAERS Safety Report 14458751 (Version 1)
Quarter: 2018Q1

REPORT INFORMATION
  Report Type: Spontaneous
  Country: ES (occurrence: ES)
  Receive Date: 20180130
  Receipt Date: 20180130
  Transmission Date: 20180509
  Serious: Yes (Other)
  Sender: FDA-Public Use
  Company Number: ES-MYLANLABS-2018M1005176

PATIENT
  Age: 80 Year
  Sex: Male

DRUGS (5)
  1. IMATINIB [Interacting]
     Active Substance: IMATINIB
     Dosage: 800 MG, UNK
  2. PHENYTOIN. [Suspect]
     Active Substance: PHENYTOIN
     Indication: SEIZURE
     Dosage: UNK
  3. TRIPTORELIN [Concomitant]
     Active Substance: TRIPTORELIN
     Indication: PRODUCT USED FOR UNKNOWN INDICATION
     Dosage: UNK
  4. IMATINIB [Interacting]
     Active Substance: IMATINIB
     Indication: CHRONIC MYELOID LEUKAEMIA
     Dosage: 400 MG, UNK
  5. IMATINIB [Interacting]
     Active Substance: IMATINIB
     Dosage: 600 MG, UNK

REACTIONS (3)
  - Drug level decreased [Unknown]
  - Cytopenia [Unknown]
  - Drug interaction [Unknown]
